FAERS Safety Report 19164369 (Version 4)
Quarter: 2023Q1

REPORT INFORMATION
  Report Type: Spontaneous
  Country: US (occurrence: US)
  Receive Date: 20210421
  Receipt Date: 20230124
  Transmission Date: 20230418
  Serious: No
  Sender: FDA-Public Use
  Company Number: US-PFIZER INC-2021386190

PATIENT
  Age: 62 Year
  Sex: Female

DRUGS (2)
  1. EUCRISA [Suspect]
     Active Substance: CRISABOROLE
     Indication: Skin disorder
     Dosage: UNK, 2X/DAY (100 GRAM TUBE, 5 REFILLS)
     Route: 061
  2. EUCRISA [Suspect]
     Active Substance: CRISABOROLE
     Dosage: UNK, DAILY (1 APPLICATION ON SKIN DAILY)
     Route: 061

REACTIONS (6)
  - Dry skin [Unknown]
  - Pain [Unknown]
  - Rash [Unknown]
  - Eczema [Unknown]
  - Arthritis [Unknown]
  - Off label use [Unknown]
